FAERS Safety Report 20202876 (Version 7)
Quarter: 2022Q3

REPORT INFORMATION
  Report Type: Report from Study
  Country: US (occurrence: US)
  Receive Date: 20211218
  Receipt Date: 20220926
  Transmission Date: 20221027
  Serious: No
  Sender: FDA-Public Use
  Company Number: US-NOVARTISTESTPH-NVSC2021US290280

PATIENT
  Sex: Female

DRUGS (2)
  1. COSENTYX [Suspect]
     Active Substance: SECUKINUMAB
     Indication: Psoriasis
     Dosage: 300 MG, QMO
     Route: 058
  2. COSENTYX [Suspect]
     Active Substance: SECUKINUMAB
     Dosage: UNK, QMO (INSTEAD OF EVERY 30 DAYS, SHE TAKING OF EVERY 28 DAYS)
     Route: 065

REACTIONS (4)
  - Back pain [Unknown]
  - Peripheral swelling [Unknown]
  - Hypokinesia [Unknown]
  - Therapeutic response shortened [Unknown]
